FAERS Safety Report 9373612 (Version 1)
Quarter: 2013Q2

REPORT INFORMATION
  Report Type: Spontaneous
  Country: IT (occurrence: IT)
  Receive Date: 20130627
  Receipt Date: 20130627
  Transmission Date: 20140414
  Serious: Yes (Hospitalization, Other)
  Sender: FDA-Public Use
  Company Number: IT-GILEAD-2013-0077743

PATIENT
  Age: 41 Year
  Sex: Male

DRUGS (7)
  1. VIREAD [Suspect]
     Indication: HEPATIC CIRRHOSIS
     Dosage: 300 MG, QD
     Route: 048
     Dates: start: 20121020, end: 20130608
  2. VIREAD [Interacting]
     Indication: HEPATITIS B
  3. TORA-DOL [Interacting]
     Indication: PAIN IN EXTREMITY
     Dosage: 1 DF, CYCLICAL
     Route: 030
     Dates: start: 20130415, end: 20130530
  4. EN [Concomitant]
     Dosage: 2 MG, QD
  5. HALDOL                             /00027401/ [Concomitant]
     Dosage: 70 DF, QD
  6. ENTUMIN [Concomitant]
     Dosage: 50 DF, QD
  7. AKINETON                           /00079501/ [Concomitant]
     Dosage: 4 MG, QD

REACTIONS (7)
  - Paraesthesia [Recovering/Resolving]
  - Dysphagia [Unknown]
  - Muscular weakness [Unknown]
  - Aspartate aminotransferase increased [Recovered/Resolved]
  - Alanine aminotransferase increased [Recovering/Resolving]
  - Blood creatine phosphokinase increased [Recovered/Resolved]
  - Renal tubular acidosis [Unknown]
